FAERS Safety Report 5191170-9 (Version None)
Quarter: 2006Q4

REPORT INFORMATION
  Report Type: 
  Country: None (occurrence: None)
  Receive Date: 20061226
  Receipt Date: 20061128
  Transmission Date: 20070319
  Serious: Yes (Hospitalization)
  Sender: FDA-Public Use
  Company Number: FR-AVENTIS-200614173FR

PATIENT
  Age: 79 Year
  Sex: Male
  Weight: 68 kg

DRUGS (8)
  1. KETEK [Suspect]
     Route: 048
  2. KETEK [Suspect]
     Indication: BRONCHITIS
     Route: 048
  3. PREVISCAN                          /00789001/ [Suspect]
     Route: 048
  4. PROZAC [Suspect]
     Route: 048
  5. OGAST [Suspect]
     Route: 048
  6. SOLU-MEDROL [Suspect]
     Route: 048
  7. PULMICORT [Concomitant]
     Indication: BRONCHITIS
  8. BRONCHATHIOL [Concomitant]
     Indication: BRONCHITIS

REACTIONS (5)
  - DRUG INTERACTION [None]
  - HAEMOPTYSIS [None]
  - INTERNATIONAL NORMALISED RATIO INCREASED [None]
  - OVERDOSE [None]
  - PROTHROMBIN LEVEL DECREASED [None]
